FAERS Safety Report 4911999-9 (Version None)
Quarter: 2006Q1

REPORT INFORMATION
  Report Type: 
  Country: None (occurrence: None)
  Receive Date: 20060213
  Receipt Date: 20060127
  Transmission Date: 20060701
  Serious: Yes (Other)
  Sender: FDA-Public Use
  Company Number: 2006EU000298

PATIENT
  Sex: Male
  Weight: 86.6 kg

DRUGS (1)
  1. VESICARE [Suspect]
     Indication: HYPERTONIC BLADDER
     Dosage: 5 MG, WEEKLY, ORAL
     Route: 048
     Dates: start: 20050201, end: 20050501

REACTIONS (1)
  - PHOTOSENSITIVITY REACTION [None]
